FAERS Safety Report 7452351-4 (Version None)
Quarter: 2011Q2

REPORT INFORMATION
  Report Type: 
  Country: None (occurrence: None)
  Receive Date: 20110502
  Receipt Date: 20110422
  Transmission Date: 20111010
  Serious: Yes (Hospitalization)
  Sender: FDA-Public Use
  Company Number: US-JNJFOC-20110410363

PATIENT
  Sex: Female
  Weight: 49.9 kg

DRUGS (3)
  1. INDERAL [Concomitant]
     Indication: VARICOSE VEIN
     Route: 048
  2. SIMPONI [Suspect]
     Indication: RHEUMATOID ARTHRITIS
     Route: 058
  3. PRILOSEC [Concomitant]
     Indication: GASTROINTESTINAL DISORDER THERAPY
     Route: 048

REACTIONS (3)
  - ANAEMIA [None]
  - BRONCHITIS [None]
  - EAR INFECTION [None]
